FAERS Safety Report 15033652 (Version 1)
Quarter: 2018Q2

REPORT INFORMATION
  Report Type: Spontaneous
  Country: US (occurrence: US)
  Receive Date: 20180619
  Receipt Date: 20180619
  Transmission Date: 20180711
  Serious: No
  Sender: FDA-Public Use
  Company Number: US-AMGEN-USASP2011036698

PATIENT
  Age: 23 Year
  Sex: Female

DRUGS (1)
  1. NEUPOGEN [Suspect]
     Active Substance: FILGRASTIM
     Indication: PRODUCT USED FOR UNKNOWN INDICATION
     Dosage: 480 ?G, UNK
     Dates: start: 20110221

REACTIONS (3)
  - Injection site pain [Unknown]
  - Injection site reaction [Unknown]
  - Laryngitis [Unknown]

NARRATIVE: CASE EVENT DATE: 20110719
